FAERS Safety Report 6389709-0 (Version None)
Quarter: 2009Q4

REPORT INFORMATION
  Report Type: 
  Country: None (occurrence: None)
  Receive Date: 20091002
  Receipt Date: 20091002
  Transmission Date: 20100525
  Serious: Yes (Life-Threatening, Hospitalization, Other)
  Sender: FDA-Public Use
  Company Number: None

PATIENT
  Sex: Female
  Weight: 104.3273 kg

DRUGS (1)
  1. AVELOX [Suspect]
     Dosage: 1 TABLET DAILY PO
     Route: 048
     Dates: start: 20090924, end: 20090924

REACTIONS (1)
  - ANAPHYLACTIC SHOCK [None]
